FAERS Safety Report 26075123 (Version 3)
Quarter: 2025Q4

REPORT INFORMATION
  Report Type: Report from Study
  Country: TH (occurrence: TH)
  Receive Date: 20251121
  Receipt Date: 20251224
  Transmission Date: 20260118
  Serious: Yes (Hospitalization)
  Sender: DAIICHI
  Company Number: TH-DSJP-DS-2025-176911-TH

PATIENT
  Age: 61 Year
  Sex: Female

DRUGS (1)
  1. ENHERTU [Suspect]
     Active Substance: FAM-TRASTUZUMAB DERUXTECAN-NXKI
     Indication: HER2 mutant non-small cell lung cancer
     Dosage: UNK
     Route: 042
     Dates: start: 20250430

REACTIONS (4)
  - Drug hypersensitivity [Recovered/Resolved]
  - Hyponatraemia [Recovered/Resolved]
  - Hypoglycaemia [Recovered/Resolved]
  - Vomiting [Recovered/Resolved]

NARRATIVE: CASE EVENT DATE: 20251202
